FAERS Safety Report 6186532-7 (Version None)
Quarter: 2009Q2

REPORT INFORMATION
  Report Type: 
  Country: None (occurrence: None)
  Receive Date: 20090507
  Receipt Date: 20090507
  Transmission Date: 20091009
  Serious: Yes (Other)
  Sender: FDA-Public Use
  Company Number: None

PATIENT
  Sex: Female
  Weight: 65.7716 kg

DRUGS (4)
  1. ARIMIDEX [Suspect]
     Indication: BREAST CANCER STAGE I
     Dosage: 1MG ONCE DAILY PO
     Route: 048
     Dates: start: 20070921, end: 20071023
  2. ARIMIDEX [Suspect]
     Indication: OESTROGEN RECEPTOR ASSAY POSITIVE
     Dosage: 1MG ONCE DAILY PO
     Route: 048
     Dates: start: 20070921, end: 20071023
  3. FEMARA [Suspect]
     Indication: BREAST CANCER STAGE I
     Dosage: 2MG  ONCE DAILY PO
     Route: 048
     Dates: start: 20071107, end: 20080128
  4. FEMARA [Suspect]
     Indication: OESTROGEN RECEPTOR ASSAY POSITIVE
     Dosage: 2MG  ONCE DAILY PO
     Route: 048
     Dates: start: 20071107, end: 20080128

REACTIONS (23)
  - AMNESIA [None]
  - APATHY [None]
  - BACK PAIN [None]
  - BLOOD CHOLESTEROL INCREASED [None]
  - BLOOD PRESSURE SYSTOLIC INCREASED [None]
  - COGNITIVE DISORDER [None]
  - DECREASED ACTIVITY [None]
  - DECREASED APPETITE [None]
  - DISTURBANCE IN ATTENTION [None]
  - HIGH DENSITY LIPOPROTEIN INCREASED [None]
  - INFLUENZA [None]
  - LOW DENSITY LIPOPROTEIN INCREASED [None]
  - MENTAL IMPAIRMENT [None]
  - NAUSEA [None]
  - NO THERAPEUTIC RESPONSE [None]
  - OSTEOARTHRITIS [None]
  - PAIN [None]
  - PERSONALITY CHANGE [None]
  - TENDONITIS [None]
  - UPPER RESPIRATORY TRACT INFECTION [None]
  - URINARY TRACT INFECTION [None]
  - VISION BLURRED [None]
  - WEIGHT DECREASED [None]
